FAERS Safety Report 18797373 (Version 1)
Quarter: 2021Q1

REPORT INFORMATION
  Report Type: Report from Study
  Country: CA (occurrence: CA)
  Receive Date: 20210128
  Receipt Date: 20210128
  Transmission Date: 20210419
  Serious: Yes (Other)
  Sender: FDA-Public Use
  Company Number: CA-JNJFOC-20190907001

PATIENT
  Age: 66 Year
  Sex: Male
  Weight: 59.2 kg

DRUGS (2)
  1. STELARA [Suspect]
     Active Substance: USTEKINUMAB
     Indication: PSORIASIS
     Route: 058
     Dates: start: 20180320
  2. STELARA [Suspect]
     Active Substance: USTEKINUMAB

REACTIONS (6)
  - Gastric haemorrhage [Unknown]
  - Gastrointestinal bacterial infection [Unknown]
  - Decreased appetite [Unknown]
  - Dysphagia [Unknown]
  - Micturition urgency [Unknown]
  - Weight increased [Unknown]

NARRATIVE: CASE EVENT DATE: 2019
